FAERS Safety Report 11747974 (Version 1)
Quarter: 2015Q4

REPORT INFORMATION
  Report Type: Spontaneous
  Country: US (occurrence: US)
  Receive Date: 20151117
  Receipt Date: 20151117
  Transmission Date: 20160304
  Serious: Yes (Other)
  Sender: FDA-Public Use
  Company Number: US-ASTRAZENECA-2015SF09520

PATIENT
  Age: 751 Month
  Sex: Male
  Weight: 54.4 kg

DRUGS (6)
  1. ALKA SELTZER [Concomitant]
     Active Substance: ANHYDROUS CITRIC ACID\ASPIRIN\SODIUM BICARBONATE
     Indication: ARTHRITIS
     Dosage: AS REQUIRED
     Route: 048
  2. DILTIAZEM [Concomitant]
     Active Substance: DILTIAZEM
     Indication: CARDIAC DISORDER
     Route: 048
     Dates: start: 201302
  3. TUDORZA PRESSAIR [Suspect]
     Active Substance: ACLIDINIUM BROMIDE
     Indication: EMPHYSEMA
     Dosage: 400 UG, ONE PUFF, TWO TIMES A DAY
     Route: 055
     Dates: start: 201510
  4. TUDORZA PRESSAIR [Suspect]
     Active Substance: ACLIDINIUM BROMIDE
     Indication: EMPHYSEMA
     Dosage: 400 UG, ONE PUFF, TWO TIMES A DAY
     Route: 055
     Dates: start: 201509
  5. IBUPROFEN. [Concomitant]
     Active Substance: IBUPROFEN
     Indication: ARTHRITIS
     Dosage: AS REQUIRED
     Route: 048
  6. TUDORZA PRESSAIR [Suspect]
     Active Substance: ACLIDINIUM BROMIDE
     Indication: EMPHYSEMA
     Dosage: 400 UG, ONE PUFF, TWO TIMES A DAY
     Route: 055
     Dates: start: 201302

REACTIONS (8)
  - Drug dose omission [Unknown]
  - Overdose [Unknown]
  - Decreased appetite [Not Recovered/Not Resolved]
  - Intentional device misuse [Unknown]
  - Weight decreased [Not Recovered/Not Resolved]
  - Dysgeusia [Not Recovered/Not Resolved]
  - Myocardial infarction [Unknown]
  - Product quality issue [Unknown]

NARRATIVE: CASE EVENT DATE: 201302
